FAERS Safety Report 18549578 (Version 1)
Quarter: 2020Q4

REPORT INFORMATION
  Report Type: Report from Study
  Country: US (occurrence: US)
  Receive Date: 20201126
  Receipt Date: 20201126
  Transmission Date: 20210114
  Serious: Yes (Other)
  Sender: FDA-Public Use
  Company Number: US-ACCORD-208445

PATIENT
  Age: 45 Year
  Sex: Female

DRUGS (4)
  1. PERTUZUMAB. [Suspect]
     Active Substance: PERTUZUMAB
     Indication: BREAST CANCER
     Dosage: (LOADING DOSE 840MG-420MG EVERY 3WEEKS FOR CYCLES 2-6)
  2. DOCETAXEL. [Suspect]
     Active Substance: DOCETAXEL
     Indication: BREAST CANCER
     Dosage: 75MG/M2 EVERY?3WEEKS, 6 CYCLE
  3. CARBOPLATIN. [Suspect]
     Active Substance: CARBOPLATIN
     Indication: BREAST CANCER
     Dosage: AUC 6 EVERY?3WEEKS, 6 CYCLE
  4. TRASTUZUMAB. [Suspect]
     Active Substance: TRASTUZUMAB
     Indication: BREAST CANCER
     Dosage: LOADING DOSE 8MG/KG-THEN 6MG/KG EVERY 3WEEKS FOR CYCLES 2-6

REACTIONS (3)
  - Meibomian gland dysfunction [Recovered/Resolved]
  - Neuropathy peripheral [Unknown]
  - Off label use [Unknown]
